FAERS Safety Report 6371140-5 (Version None)
Quarter: 2009Q3

REPORT INFORMATION
  Report Type: 
  Country: None (occurrence: None)
  Receive Date: 20090923
  Receipt Date: 20090918
  Transmission Date: 20100115
  Serious: Yes (Disabling)
  Sender: FDA-Public Use
  Company Number: US-MERCK-0909USA01440

PATIENT
  Age: 70 Year
  Sex: Male

DRUGS (4)
  1. SINGULAIR [Suspect]
     Indication: HYPERSENSITIVITY
     Route: 048
     Dates: start: 20090820, end: 20090822
  2. HYDROCODONE [Concomitant]
     Route: 065
  3. LISINOPRIL [Concomitant]
     Route: 048
  4. SYNTHROID [Concomitant]
     Route: 065

REACTIONS (4)
  - BACK PAIN [None]
  - GAIT DISTURBANCE [None]
  - INSOMNIA [None]
  - PAIN IN EXTREMITY [None]
